FAERS Safety Report 6372875-0 (Version None)
Quarter: 2009Q3

REPORT INFORMATION
  Report Type: 
  Country: None (occurrence: None)
  Receive Date: 20090924
  Receipt Date: 20090311
  Transmission Date: 20100115
  Serious: No
  Sender: FDA-Public Use
  Company Number: US-ASTRAZENECA-2008UW25904

PATIENT
  Age: 57 Year
  Sex: Male
  Weight: 74.8 kg

DRUGS (1)
  1. SEROQUEL [Suspect]
     Indication: POST-TRAUMATIC STRESS DISORDER
     Route: 048
     Dates: start: 20051101, end: 20061001

REACTIONS (2)
  - DIABETES MELLITUS [None]
  - GASTROINTESTINAL DISORDER [None]
